FAERS Safety Report 12601673 (Version 1)
Quarter: 2016Q3

REPORT INFORMATION
  Report Type: Spontaneous
  Country: US (occurrence: None)
  Receive Date: 20160727
  Receipt Date: 20160727
  Transmission Date: 20161109
  Serious: Yes (Life-Threatening, Hospitalization, Disabling, Other)
  Sender: FDA-Public Use
  Company Number: None

PATIENT
  Age: 43 Year
  Sex: Female
  Weight: 83.92 kg

DRUGS (31)
  1. BACLOFEN. [Concomitant]
     Active Substance: BACLOFEN
  2. NAPROXEN. [Concomitant]
     Active Substance: NAPROXEN
  3. IBUPROFEN 600MG [Suspect]
     Active Substance: IBUPROFEN
  4. DOCUSATE SODIUM. [Concomitant]
     Active Substance: DOCUSATE SODIUM
  5. CYCLOBENZAPRINE [Concomitant]
     Active Substance: CYCLOBENZAPRINE
  6. LIDOCAINE. [Concomitant]
     Active Substance: LIDOCAINE
  7. LANSOPRAZOLE. [Concomitant]
     Active Substance: LANSOPRAZOLE
  8. ALPRAZOLAN [Concomitant]
     Active Substance: ALPRAZOLAM
  9. Q-PAP [Concomitant]
     Active Substance: ACETAMINOPHEN
  10. DOXYCYCLINE. [Concomitant]
     Active Substance: DOXYCYCLINE
  11. TRAMADOL HCL [Concomitant]
     Active Substance: TRAMADOL HYDROCHLORIDE
  12. PROBIOTIC [Concomitant]
     Active Substance: PROBIOTICS NOS
  13. SULFAMETHOXAZOLE [Concomitant]
     Active Substance: SULFAMETHOXAZOLE
  14. TRAZODONE [Concomitant]
     Active Substance: TRAZODONE HYDROCHLORIDE
  15. CIPRO HC OTTC [Concomitant]
  16. FAMOTIDINE. [Concomitant]
     Active Substance: FAMOTIDINE
  17. HYDROXYZINE [Concomitant]
     Active Substance: HYDROXYZINE\HYDROXYZINE HYDROCHLORIDE
  18. AZITHROMYCIN ANHYDROUS. [Concomitant]
     Active Substance: AZITHROMYCIN ANHYDROUS
  19. CLOTRIMAZOLE. [Concomitant]
     Active Substance: CLOTRIMAZOLE
  20. PROBIOTIC [Concomitant]
     Active Substance: PROBIOTICS NOS
  21. OMEPRAZOLE DR [Suspect]
     Active Substance: OMEPRAZOLE
  22. METHOCARBAMOL 500 MG [Suspect]
     Active Substance: METHOCARBAMOL
  23. HYDROCODONE 5-325 MG [Suspect]
     Active Substance: ACETAMINOPHEN\HYDROCODONE BITARTRATE
  24. CITRIZINE HCL [Concomitant]
  25. FLUOXETINE [Concomitant]
     Active Substance: FLUOXETINE HYDROCHLORIDE
  26. HYDROCODONE-APAP [Concomitant]
     Active Substance: ACETAMINOPHEN\HYDROCODONE
  27. CIPROFLAXEN [Concomitant]
  28. ONDANSETRON [Concomitant]
     Active Substance: ONDANSETRON
  29. MASANTI PLUS SUSPENSION [Concomitant]
  30. METRONIDAZOLE. [Concomitant]
     Active Substance: METRONIDAZOLE
  31. FLUCONAZOLE. [Concomitant]
     Active Substance: FLUCONAZOLE

REACTIONS (2)
  - Eating disorder [None]
  - Bone disorder [None]
